FAERS Safety Report 11000981 (Version 2)
Quarter: 2016Q2

REPORT INFORMATION
  Report Type: Spontaneous
  Country: US (occurrence: US)
  Receive Date: 20150408
  Receipt Date: 20160412
  Transmission Date: 20160815
  Serious: No
  Sender: FDA-Public Use
  Company Number: US-SA-2014SA148907

PATIENT
  Age: 68 Year
  Sex: Female

DRUGS (3)
  1. ALLEGRA [Suspect]
     Active Substance: FEXOFENADINE HYDROCHLORIDE
     Indication: URTICARIA
     Dosage: TAKEN FROM: YESTERDAY?FREQUENCY: 5 DAILY
     Route: 048
  2. ALLEGRA [Suspect]
     Active Substance: FEXOFENADINE HYDROCHLORIDE
     Indication: URTICARIA
     Dosage: TAKEN FROM: YESTERDAY?FREQUENCY: 5 DAILY
     Route: 048
  3. XYZAL [Concomitant]
     Active Substance: LEVOCETIRIZINE DIHYDROCHLORIDE
     Indication: URTICARIA

REACTIONS (4)
  - Extra dose administered [Unknown]
  - Drug prescribing error [Unknown]
  - Foreign body [Unknown]
  - Therapeutic response decreased [Unknown]
